FAERS Safety Report 5199052-3 (Version None)
Quarter: 2006Q4

REPORT INFORMATION
  Report Type: 
  Country: None (occurrence: None)
  Receive Date: 20060919
  Receipt Date: 20060526
  Transmission Date: 20070319
  Serious: Yes (Other)
  Sender: FDA-Public Use
  Company Number: HQWYE635501JUN06

PATIENT
  Age: 35 Year
  Sex: Female
  Weight: 108.96 kg

DRUGS (2)
  1. ADVIL [Suspect]
     Indication: TEMPOROMANDIBULAR JOINT SYNDROME
     Dosage: 3-4 LIQUI-GELS 4 TIMES PER DAY, ORAL
     Route: 048
     Dates: start: 20060401
  2. SINGULAIR [Concomitant]

REACTIONS (1)
  - JOINT SWELLING [None]
